FAERS Safety Report 5304167-2 (Version None)
Quarter: 2007Q2

REPORT INFORMATION
  Report Type: 
  Country: None (occurrence: None)
  Receive Date: 20070423
  Receipt Date: 20070412
  Transmission Date: 20071010
  Serious: Yes (Other)
  Sender: FDA-Public Use
  Company Number: PHBS2007JP06529

PATIENT
  Sex: Male

DRUGS (2)
  1. NEORAL [Suspect]
     Indication: RHEUMATOID ARTHRITIS
     Dosage: 75 MG DAILY
     Route: 048
     Dates: end: 20070411
  2. NEORAL [Suspect]
     Dosage: 50 MG DAILY
     Route: 048
     Dates: start: 20070412

REACTIONS (2)
  - DRUG LEVEL DECREASED [None]
  - HALLUCINATION [None]
